APPROVED DRUG PRODUCT: NEBIVOLOL HYDROCHLORIDE
Active Ingredient: NEBIVOLOL HYDROCHLORIDE
Strength: EQ 10MG BASE
Dosage Form/Route: TABLET;ORAL
Application: A216172 | Product #003 | TE Code: AB
Applicant: MANKIND PHARMA LTD
Approved: Nov 14, 2022 | RLD: No | RS: No | Type: RX